FAERS Safety Report 16934032 (Version 1)
Quarter: 2019Q4

REPORT INFORMATION
  Report Type: Spontaneous
  Country: US (occurrence: US)
  Receive Date: 20191018
  Receipt Date: 20191018
  Transmission Date: 20200122
  Serious: Yes (Hospitalization)
  Sender: FDA-Public Use
  Company Number: US-TORRENT-00009355

PATIENT
  Sex: Male
  Weight: 99 kg

DRUGS (2)
  1. LOSARTAN. [Suspect]
     Active Substance: LOSARTAN
     Indication: HYPERTENSION
     Dosage: UNKNOWN
     Route: 048
     Dates: start: 201812, end: 201902
  2. ASPIRIN. [Concomitant]
     Active Substance: ASPIRIN
     Indication: HEART RATE INCREASED
     Dosage: OCCASIONALLY
     Route: 048

REACTIONS (3)
  - Heart rate increased [Unknown]
  - Myocardial infarction [Unknown]
  - Chest pain [Not Recovered/Not Resolved]
